FAERS Safety Report 9750182 (Version 1)
Quarter: 2013Q4

REPORT INFORMATION
  Report Type: Spontaneous
  Country: US (occurrence: US)
  Receive Date: 20131212
  Receipt Date: 20131212
  Transmission Date: 20140711
  Serious: Yes (Other)
  Sender: FDA-Public Use
  Company Number: US-GLAXOSMITHKLINE-A1052087A

PATIENT
  Age: 38 Year
  Sex: Female

DRUGS (15)
  1. ADVAIR [Suspect]
     Indication: ASTHMA
     Dosage: 1PUFF TWICE PER DAY
     Route: 055
     Dates: start: 20121120
  2. FLOVENT [Suspect]
     Indication: ASTHMA
     Dosage: 1PUFF TWICE PER DAY
     Route: 055
     Dates: start: 20130925, end: 20131012
  3. PAROXETINE [Suspect]
     Indication: DEPRESSION
     Route: 048
     Dates: start: 1995, end: 2005
  4. BENADRYL [Concomitant]
  5. KLONOPIN [Concomitant]
  6. SOMA [Concomitant]
  7. HYDROCHLOROTHIAZIDE + NEBIVOLOL HYDROCHLORIDE [Concomitant]
  8. SYNTHROID [Concomitant]
  9. CRESTOR [Concomitant]
  10. ASPIRIN [Concomitant]
  11. PAIN MED [Concomitant]
  12. VITAMINS [Concomitant]
  13. ABILIFY [Concomitant]
  14. VENTOLIN [Concomitant]
  15. OXYCODONE [Concomitant]

REACTIONS (10)
  - Oesophageal candidiasis [Recovering/Resolving]
  - Wheezing [Recovering/Resolving]
  - Laryngitis [Recovering/Resolving]
  - Dysphonia [Recovering/Resolving]
  - Bronchitis [Recovering/Resolving]
  - Bacterial infection [Recovering/Resolving]
  - Weight increased [Recovering/Resolving]
  - Depression [Not Recovered/Not Resolved]
  - Disability [Not Recovered/Not Resolved]
  - Exercise lack of [Not Recovered/Not Resolved]
